FAERS Safety Report 7208710-8 (Version None)
Quarter: 2010Q4

REPORT INFORMATION
  Report Type: 
  Country: None (occurrence: None)
  Receive Date: 20101222
  Receipt Date: 20100913
  Transmission Date: 20110411
  Serious: Yes (Life-Threatening, Hospitalization)
  Sender: FDA-Public Use
  Company Number: 1000017698

PATIENT

DRUGS (1)
  1. DINOPROSTONE (DINOPROSTONE) (VAGINAL INSERT) [Suspect]
     Dosage: (10 MG,ONCE),TRANSPLACENTAL
     Route: 064
     Dates: start: 20100907, end: 20100907

REACTIONS (5)
  - APGAR SCORE LOW [None]
  - BRADYCARDIA FOETAL [None]
  - CAESAREAN SECTION [None]
  - FOETAL DISTRESS SYNDROME [None]
  - MATERNAL DRUGS AFFECTING FOETUS [None]
